FAERS Safety Report 6651915-5 (Version None)
Quarter: 2010Q1

REPORT INFORMATION
  Report Type: 
  Country: None (occurrence: None)
  Receive Date: 20100325
  Receipt Date: 20100316
  Transmission Date: 20100710
  Serious: Yes (Other)
  Sender: FDA-Public Use
  Company Number: GB-JNJFOC-20100304719

PATIENT
  Sex: Female

DRUGS (1)
  1. CILEST [Suspect]
     Indication: CONTRACEPTION
     Route: 048

REACTIONS (4)
  - HYPERTENSION [None]
  - IRRITABLE BOWEL SYNDROME [None]
  - METRORRHAGIA [None]
  - OCULAR ICTERUS [None]
